FAERS Safety Report 12704964 (Version 1)
Quarter: 2016Q3

REPORT INFORMATION
  Report Type: Spontaneous
  Country: BR (occurrence: BR)
  Receive Date: 20160831
  Receipt Date: 20160831
  Transmission Date: 20161109
  Serious: Yes (Other)
  Sender: FDA-Public Use
  Company Number: ALCN2016BR006016

PATIENT
  Sex: Male

DRUGS (20)
  1. MAXITROL [Suspect]
     Active Substance: DEXAMETHASONE\NEOMYCIN SULFATE\POLYMYXIN B SULFATE
     Dosage: 1 GTT, QD (THIRD WEEK)
     Route: 047
  2. VIGAMOXI [Suspect]
     Active Substance: MOXIFLOXACIN
     Indication: PRODUCT USED FOR UNKNOWN INDICATION
     Dosage: 1 GTT, Q6H
     Route: 047
  3. KETOCONAZOL [Suspect]
     Active Substance: KETOCONAZOLE
     Indication: PRODUCT USED FOR UNKNOWN INDICATION
     Dosage: 1 DF, (12/12 HOUS FOR 40 DAYS)
     Route: 048
  4. GENTAMICIN. [Suspect]
     Active Substance: GENTAMICIN
     Dosage: 1 GTT, (1/1 HOUR) 50 MG/ML
     Route: 047
  5. ATROPINE. [Suspect]
     Active Substance: ATROPINE
     Indication: PRODUCT USED FOR UNKNOWN INDICATION
     Dosage: 1 GTT, BID (2 TIMES A DAY)
     Route: 047
  6. MAXITROL [Suspect]
     Active Substance: DEXAMETHASONE\NEOMYCIN SULFATE\POLYMYXIN B SULFATE
     Dosage: 1 GTT, QOD (FOURTH WEEK)
     Route: 047
  7. ZYMAR [Suspect]
     Active Substance: GATIFLOXACIN
     Indication: PRODUCT USED FOR UNKNOWN INDICATION
     Dosage: 1 GTT, Q6H
     Route: 047
  8. GENTAMICIN. [Suspect]
     Active Substance: GENTAMICIN
     Indication: PRODUCT USED FOR UNKNOWN INDICATION
     Dosage: 1 GTT, (1/1 HOUR) 1.5%
     Route: 047
  9. PIMARICIN [Suspect]
     Active Substance: NATAMYCIN
     Dosage: 1 GTT, Q3H
     Route: 047
  10. OPTIVE [Suspect]
     Active Substance: CARBOXYMETHYLCELLULOSE SODIUM\GLYCERIN
     Indication: PRODUCT USED FOR UNKNOWN INDICATION
     Dosage: 1 GTT, QID
     Route: 047
  11. MYDRIACYL [Suspect]
     Active Substance: TROPICAMIDE
     Indication: PRODUCT USED FOR UNKNOWN INDICATION
     Dosage: 1 GTT, Q8H
     Route: 047
  12. PIMARICIN [Suspect]
     Active Substance: NATAMYCIN
     Indication: PRODUCT USED FOR UNKNOWN INDICATION
     Dosage: 1 GTT, (1/1 HOUR)
     Route: 047
  13. BIGUANIDES [Suspect]
     Active Substance: UNSPECIFIED INGREDIENT
     Indication: PRODUCT USED FOR UNKNOWN INDICATION
     Dosage: 1 GTT, Q3H
     Route: 047
  14. SYSTANE ULTRA [Suspect]
     Active Substance: POLYETHYLENE GLYCOL 400\PROPYLENE GLYCOL
     Indication: PRODUCT USED FOR UNKNOWN INDICATION
     Dosage: 1 GTT, Q6H
     Route: 047
  15. CEFAZOLIN [Suspect]
     Active Substance: CEFAZOLIN
     Indication: PRODUCT USED FOR UNKNOWN INDICATION
     Dosage: 1 GTT, (1/1 HOUR)
     Route: 047
  16. HYALOGEL [Suspect]
     Active Substance: HYALURONATE SODIUM
     Indication: PRODUCT USED FOR UNKNOWN INDICATION
     Dosage: 1 GTT, Q2H
     Route: 047
  17. MAXITROL [Suspect]
     Active Substance: DEXAMETHASONE\NEOMYCIN SULFATE\POLYMYXIN B SULFATE
     Indication: PRODUCT USED FOR UNKNOWN INDICATION
     Dosage: 1 GTT, Q8H (FIRST WEEK) FOR 7 DAYS
     Route: 047
  18. BROLENE (PROPAMIDINE ISETHIONATE) [Suspect]
     Active Substance: PROPAMIDINE ISETHIONATE
     Indication: PRODUCT USED FOR UNKNOWN INDICATION
     Dosage: 1 GTT, Q4H
     Route: 047
  19. MAXITROL [Suspect]
     Active Substance: DEXAMETHASONE\NEOMYCIN SULFATE\POLYMYXIN B SULFATE
     Dosage: 1 GTT, Q12H (SECOND WEEK) FOR 7 DAYS
     Route: 047
  20. PRED FORT [Suspect]
     Active Substance: PREDNISOLONE ACETATE
     Indication: PRODUCT USED FOR UNKNOWN INDICATION
     Dosage: 1 GTT, Q4H
     Route: 047

REACTIONS (7)
  - Eye discharge [Unknown]
  - Ocular hyperaemia [Unknown]
  - Corneal transplant [None]
  - Vitreous haemorrhage [Unknown]
  - Eye irritation [Unknown]
  - Ulcerative keratitis [Unknown]
  - Eye inflammation [Unknown]
